FAERS Safety Report 16765537 (Version 5)
Quarter: 2020Q4

REPORT INFORMATION
  Report Type: Spontaneous
  Country: US (occurrence: US)
  Receive Date: 20190903
  Receipt Date: 20201020
  Transmission Date: 20210113
  Serious: Yes (Other)
  Sender: FDA-Public Use
  Company Number: US-GILEAD-2019-0425749

PATIENT
  Age: 51 Year
  Sex: Male
  Weight: 74.39 kg

DRUGS (32)
  1. NORCO [Concomitant]
     Active Substance: ACETAMINOPHEN\HYDROCODONE BITARTRATE
  2. AMITRIPTYLINE [Concomitant]
     Active Substance: AMITRIPTYLINE
  3. ATORVASTATIN [Concomitant]
     Active Substance: ATORVASTATIN
  4. NAPROXEN. [Concomitant]
     Active Substance: NAPROXEN
  5. CEFUROXIME. [Concomitant]
     Active Substance: CEFUROXIME
  6. TRAZODONE [Concomitant]
     Active Substance: TRAZODONE HYDROCHLORIDE
  7. REYATAZ [Concomitant]
     Active Substance: ATAZANAVIR SULFATE
  8. TRUVADA [Suspect]
     Active Substance: EMTRICITABINE\TENOFOVIR DISOPROXIL FUMARATE
     Indication: HIV INFECTION
     Dosage: UNK
     Route: 048
     Dates: start: 2014, end: 2019
  9. PREDNISOLONE. [Concomitant]
     Active Substance: PREDNISOLONE
  10. ACETAMINOPHEN. [Concomitant]
     Active Substance: ACETAMINOPHEN
  11. PENICILLIN [BENZYLPENICILLIN] [Concomitant]
     Active Substance: PENICILLIN G
  12. NOVIRAL [Concomitant]
  13. SUSTIVA [Concomitant]
     Active Substance: EFAVIRENZ
  14. CLONAZEPAM. [Concomitant]
     Active Substance: CLONAZEPAM
  15. TRUVADA [Suspect]
     Active Substance: EMTRICITABINE\TENOFOVIR DISOPROXIL FUMARATE
     Dosage: UNK
     Route: 065
     Dates: start: 20130215, end: 201407
  16. VIDEX [Concomitant]
     Active Substance: DIDANOSINE
  17. AMOXICILLIN + CLAV. POTASSIUM [Concomitant]
     Active Substance: AMOXICILLIN\CLAVULANATE POTASSIUM
  18. BACTROBAN [Concomitant]
     Active Substance: MUPIROCIN\MUPIROCIN CALCIUM
  19. CRIXIVAN [Concomitant]
     Active Substance: INDINAVIR SULFATE
  20. EPIVIR [Concomitant]
     Active Substance: LAMIVUDINE
  21. NORVASC [Concomitant]
     Active Substance: AMLODIPINE BESYLATE
  22. ACYCLOVIR [ACICLOVIR] [Concomitant]
     Active Substance: ACYCLOVIR
  23. ASPIRIN [ACETYLSALICYLIC ACID] [Concomitant]
     Active Substance: ASPIRIN
  24. CIPROFLOXACIN. [Concomitant]
     Active Substance: CIPROFLOXACIN
  25. ATRIPLA [Suspect]
     Active Substance: EFAVIRENZ\EMTRICITABINE\TENOFOVIR DISOPROXIL FUMARATE
     Indication: HIV INFECTION
     Dosage: UNK
     Route: 048
     Dates: start: 20140729, end: 201902
  26. DESYREL [Concomitant]
     Active Substance: TRAZODONE HYDROCHLORIDE
  27. PHENAZOPYRIDINE. [Concomitant]
     Active Substance: PHENAZOPYRIDINE
  28. TAMIFLU [Concomitant]
     Active Substance: OSELTAMIVIR PHOSPHATE
  29. TRIUMEQ [Concomitant]
     Active Substance: ABACAVIR SULFATE\DOLUTEGRAVIR SODIUM\LAMIVUDINE
  30. MELOXICAM. [Concomitant]
     Active Substance: MELOXICAM
  31. WELCHOL [Concomitant]
     Active Substance: COLESEVELAM HYDROCHLORIDE
  32. SODIUM CHLORIDE. [Concomitant]
     Active Substance: SODIUM CHLORIDE

REACTIONS (9)
  - Emotional distress [Unknown]
  - Bone density decreased [Recovered/Resolved]
  - Bone loss [Unknown]
  - Tooth loss [Unknown]
  - Anxiety [Unknown]
  - Pain [Unknown]
  - Anhedonia [Unknown]
  - Economic problem [Unknown]
  - Hand fracture [Recovered/Resolved]

NARRATIVE: CASE EVENT DATE: 20131026
